FAERS Safety Report 19691513 (Version 3)
Quarter: 2021Q4

REPORT INFORMATION
  Report Type: Report from Study
  Country: US (occurrence: US)
  Receive Date: 20210812
  Receipt Date: 20211028
  Transmission Date: 20220303
  Serious: Yes (Hospitalization)
  Sender: FDA-Public Use
  Company Number: US-KARYOPHARM-2021KPT001028

PATIENT
  Age: 74 Year
  Sex: Male
  Weight: 81.8 kg

DRUGS (15)
  1. SELINEXOR [Suspect]
     Active Substance: SELINEXOR
     Indication: Plasma cell myeloma
     Dosage: 60 MG, WEEKLY
     Route: 048
     Dates: start: 20200824, end: 20210802
  2. DEXAMETHASONE [Suspect]
     Active Substance: DEXAMETHASONE
     Indication: Plasma cell myeloma
     Dosage: 40 MG, WEEKLY
     Route: 048
     Dates: start: 20200909, end: 20210222
  3. DEXAMETHASONE [Suspect]
     Active Substance: DEXAMETHASONE
     Dosage: 20 MG, WEEKLY
     Route: 048
     Dates: start: 20210223, end: 20210802
  4. CARFILZOMIB [Suspect]
     Active Substance: CARFILZOMIB
     Indication: Plasma cell myeloma
     Dosage: 70 MG/M2, WEEKLY
     Route: 042
     Dates: start: 20200909
  5. ALOE VERA LEAF [Concomitant]
     Active Substance: ALOE VERA LEAF
     Dosage: UNK, PRN
     Route: 061
     Dates: start: 202007
  6. ACYCLOVIR [Concomitant]
     Active Substance: ACYCLOVIR
     Indication: Prophylaxis
     Dosage: 400 MG, BID
     Route: 048
     Dates: start: 20191010
  7. ELIQUIS [Concomitant]
     Active Substance: APIXABAN
     Indication: Anticoagulant therapy
     Dosage: 2.5 MG, BID
     Route: 048
     Dates: start: 20191111
  8. FUROSEMIDE [Concomitant]
     Active Substance: FUROSEMIDE
     Indication: Cardiac disorder
     Dosage: 20 MG, BID
     Route: 048
     Dates: start: 20191231
  9. BACTRIM [Concomitant]
     Active Substance: SULFAMETHOXAZOLE\TRIMETHOPRIM
     Dosage: 800-160 MG, M, W, F
     Route: 048
     Dates: start: 20200424
  10. POTASSIUM CHLORIDE [Concomitant]
     Active Substance: POTASSIUM CHLORIDE
     Indication: Cardiac disorder
     Dosage: 20 MEQ, BID
     Route: 048
     Dates: start: 20200128
  11. TIMOLOL MALEATE [Concomitant]
     Active Substance: TIMOLOL MALEATE
     Dosage: 1 DRP/EYE, QD
     Route: 047
     Dates: start: 2019
  12. TRAVOPROST [Concomitant]
     Active Substance: TRAVOPROST
     Dosage: 1 DRP/EYE, QD
     Route: 047
     Dates: start: 2017
  13. ONDANSETRON [Concomitant]
     Active Substance: ONDANSETRON
     Indication: Prophylaxis of nausea and vomiting
     Dosage: 8 MG, PRN
     Route: 048
     Dates: start: 20200909
  14. BRIMONIDINE [Concomitant]
     Active Substance: BRIMONIDINE TARTRATE
     Dosage: 1 DRP, BID
     Route: 047
     Dates: start: 20210120
  15. CEPHALEXIN HYDROCHLORIDE [Concomitant]
     Active Substance: CEPHALEXIN HYDROCHLORIDE

REACTIONS (1)
  - Myocardial infarction [Not Recovered/Not Resolved]

NARRATIVE: CASE EVENT DATE: 20210731
